FAERS Safety Report 13032130 (Version 2)
Quarter: 2017Q1

REPORT INFORMATION
  Report Type: Spontaneous
  Country: US (occurrence: US)
  Receive Date: 20161215
  Receipt Date: 20170208
  Transmission Date: 20170428
  Serious: Yes (Hospitalization, Other)
  Sender: FDA-Public Use
  Company Number: US-SAOL THERAPEUTICS-2016SAO01209

PATIENT
  Age: 39 Year
  Sex: Male

DRUGS (14)
  1. KEPPRA [Concomitant]
     Active Substance: LEVETIRACETAM
     Dosage: 1500 MG, 2X/DAY
     Route: 048
     Dates: end: 201205
  2. KEPPRA [Concomitant]
     Active Substance: LEVETIRACETAM
     Dosage: 2000 MG, 2X/DAY
     Route: 048
     Dates: start: 201205
  3. NAPROXEN. [Concomitant]
     Active Substance: NAPROXEN
     Dosage: 500 MG, 1X/DAY
     Route: 048
  4. CLONAZEPAM. [Concomitant]
     Active Substance: CLONAZEPAM
     Dosage: 0.5 MG, 2X/DAY
     Dates: end: 20120614
  5. BACLOFEN. [Suspect]
     Active Substance: BACLOFEN
     Indication: CEREBRAL PALSY
     Route: 037
  6. LAMICTAL [Concomitant]
     Active Substance: LAMOTRIGINE
     Dosage: 500 MG, 2X/DAY
     Dates: start: 201205
  7. CEPHALEXIN. [Concomitant]
     Active Substance: CEPHALEXIN
     Dosage: 500 MG, 3X/DAY
  8. DIAZEPAM. [Concomitant]
     Active Substance: DIAZEPAM
     Dosage: 5 MG, UP TO 6X/DAY
     Dates: end: 201205
  9. TIZANIDINE. [Concomitant]
     Active Substance: TIZANIDINE
     Dosage: 4 MG, 3X/DAY
     Route: 048
  10. BACLOFEN. [Suspect]
     Active Substance: BACLOFEN
     Indication: MUSCLE SPASTICITY
  11. LAMICTAL [Concomitant]
     Active Substance: LAMOTRIGINE
     Dosage: 400 MG, 2X/DAY
     Route: 048
     Dates: end: 201205
  12. DIAZEPAM. [Concomitant]
     Active Substance: DIAZEPAM
     Dosage: 5 MG, UP TO 1X/DAY
  13. BACLOFEN. [Concomitant]
     Active Substance: BACLOFEN
     Dosage: 20 MG, 5X/DAY
     Dates: start: 20120614
  14. BACLOFEN. [Concomitant]
     Active Substance: BACLOFEN
     Dosage: 20 MG, 4X/DAY
     Route: 048
     Dates: end: 20120614

REACTIONS (10)
  - Generalised tonic-clonic seizure [Unknown]
  - Drug withdrawal syndrome [Unknown]
  - Urinary incontinence [Unknown]
  - Medical device site erosion [Unknown]
  - Somnolence [Unknown]
  - Weight decreased [Unknown]
  - Cellulitis [Unknown]
  - Implant site mass [Not Recovered/Not Resolved]
  - Pain [Unknown]
  - Discomfort [Unknown]

NARRATIVE: CASE EVENT DATE: 2013
